FAERS Safety Report 5848469-X (Version None)
Quarter: 2008Q3

REPORT INFORMATION
  Report Type: 
  Country: None (occurrence: None)
  Receive Date: 20080815
  Receipt Date: 20080815
  Transmission Date: 20090109
  Serious: Yes (Other)
  Sender: FDA-Public Use
  Company Number: None

PATIENT
  Age: 22 Year
  Sex: Female
  Weight: 77.1115 kg

DRUGS (1)
  1. CYMBALTA [Suspect]
     Indication: MAJOR DEPRESSION
     Dosage: 20 MILLIGRAMS TWICE DAILY PO
     Route: 048
     Dates: start: 20060502, end: 20080813

REACTIONS (12)
  - ANGER [None]
  - BRAIN INJURY [None]
  - CONFUSIONAL STATE [None]
  - CRYING [None]
  - DEPRESSED MOOD [None]
  - DIZZINESS [None]
  - DRUG WITHDRAWAL SYNDROME [None]
  - FEELING ABNORMAL [None]
  - HYPERHIDROSIS [None]
  - INFLUENZA [None]
  - POISONING [None]
  - SEXUAL DYSFUNCTION [None]
